FAERS Safety Report 8563577 (Version 5)
Quarter: 2013Q3

REPORT INFORMATION
  Report Type: Spontaneous
  Country: US (occurrence: US)
  Receive Date: 20120515
  Receipt Date: 20130823
  Transmission Date: 20140515
  Serious: Yes (Hospitalization)
  Sender: FDA-Public Use
  Company Number: US-GLAXOSMITHKLINE-B0801320A

PATIENT
  Age: 71 Year
  Sex: Male
  Weight: 81.6 kg

DRUGS (3)
  1. AVANDIA [Suspect]
     Indication: DIABETES MELLITUS
     Route: 048
     Dates: start: 200903, end: 20100101
  2. AVANDARYL [Suspect]
     Indication: TYPE 2 DIABETES MELLITUS
     Route: 048
     Dates: start: 200903
  3. AVANDAMET [Suspect]
     Indication: TYPE 2 DIABETES MELLITUS
     Route: 048
     Dates: start: 200903

REACTIONS (5)
  - Myocardial infarction [Not Recovered/Not Resolved]
  - Cardiac failure [Unknown]
  - Ischaemic cardiomyopathy [Unknown]
  - Cardiogenic shock [Unknown]
  - Coronary artery disease [Unknown]
